FAERS Safety Report 13939890 (Version 1)
Quarter: 2017Q3

REPORT INFORMATION
  Report Type: Spontaneous
  Country: US (occurrence: US)
  Receive Date: 20170906
  Receipt Date: 20170906
  Transmission Date: 20171127
  Serious: No
  Sender: FDA-Public Use
  Company Number: US-MYLANLABS-2016M1054156

PATIENT
  Sex: Female

DRUGS (2)
  1. MODAFINIL TABLETS, USP [Suspect]
     Active Substance: MODAFINIL
     Indication: POOR QUALITY SLEEP
     Dosage: 200 MG, QD
     Route: 048
     Dates: start: 201608, end: 201701
  2. MODAFINIL TABLETS, USP [Suspect]
     Active Substance: MODAFINIL
     Indication: SOMNOLENCE

REACTIONS (1)
  - Drug effect decreased [Recovered/Resolved]

NARRATIVE: CASE EVENT DATE: 201608
